FAERS Safety Report 7295567-2 (Version None)
Quarter: 2011Q1

REPORT INFORMATION
  Report Type: 
  Country: None (occurrence: None)
  Receive Date: 20110216
  Receipt Date: 20110204
  Transmission Date: 20110831
  Serious: Yes (Death, Other)
  Sender: FDA-Public Use
  Company Number: US-SANOFI-AVENTIS-2010SA077528

PATIENT
  Age: 49 Year
  Sex: Female
  Weight: 77.1 kg

DRUGS (17)
  1. ASPIRIN [Concomitant]
     Dates: start: 20100825
  2. LYRICA [Concomitant]
  3. GLYCERYL TRINITRATE [Suspect]
     Route: 060
     Dates: start: 20100101
  4. BECLOMETHASONE DIPROPIONATE [Concomitant]
  5. LOVASTATIN [Concomitant]
  6. METHYLPREDNISOLONE [Concomitant]
  7. IMDUR [Concomitant]
  8. BENAZEPRIL [Concomitant]
  9. NORCO [Concomitant]
  10. AMBIEN [Concomitant]
  11. CARVEDILOL [Concomitant]
     Dates: start: 20100828
  12. AMITRIPTYLINE [Concomitant]
  13. HUMALOG [Concomitant]
  14. GEMFIBROZIL [Concomitant]
     Dates: start: 20100828
  15. BLINDED THERAPY [Suspect]
     Indication: ACUTE CORONARY SYNDROME
     Dates: start: 20100831, end: 20101204
  16. SERTRALINE [Concomitant]
  17. FENOFIBRATE [Concomitant]

REACTIONS (3)
  - CONDITION AGGRAVATED [None]
  - NON-CARDIAC CHEST PAIN [None]
  - DEATH [None]
